FAERS Safety Report 19993126 (Version 4)
Quarter: 2021Q4

REPORT INFORMATION
  Report Type: Spontaneous
  Country: ES (occurrence: ES)
  Receive Date: 20211025
  Receipt Date: 20211103
  Transmission Date: 20220303
  Serious: Yes (Other)
  Sender: FDA-Public Use
  Company Number: NVSC2021ES243202

PATIENT
  Age: 54 Year
  Sex: Female

DRUGS (3)
  1. DICLOFENAC [Suspect]
     Active Substance: DICLOFENAC
     Indication: Vision blurred
     Dosage: TID  (EVERY 8 HOURS IN LEFT EYE) (3 MG/ML, DAILY)
     Route: 061
  2. DICLOFENAC [Suspect]
     Active Substance: DICLOFENAC
     Indication: Conjunctival hyperaemia
  3. DICLOFENAC [Suspect]
     Active Substance: DICLOFENAC
     Indication: Conjunctival oedema

REACTIONS (6)
  - Exophthalmos [Recovered/Resolved]
  - Visual acuity reduced [Recovered/Resolved]
  - Conjunctival oedema [Unknown]
  - Off label use [Unknown]
  - Product use in unapproved indication [Unknown]
  - Drug ineffective for unapproved indication [Unknown]
